FAERS Safety Report 17783375 (Version 3)
Quarter: 2023Q4

REPORT INFORMATION
  Report Type: Spontaneous
  Country: US (occurrence: US)
  Receive Date: 20200514
  Receipt Date: 20231220
  Transmission Date: 20240110
  Serious: Yes (Other)
  Sender: FDA-Public Use
  Company Number: US-PFIZER INC-2020192049

PATIENT
  Age: 78 Year
  Sex: Female
  Weight: 77.11 kg

DRUGS (2)
  1. IBRANCE [Suspect]
     Active Substance: PALBOCICLIB
     Indication: Neoplasm malignant
     Dosage: 3 PILLS EVERY WEEK
     Route: 048
  2. IBRANCE [Suspect]
     Active Substance: PALBOCICLIB
     Dosage: ONE PILL A DAY
     Route: 048

REACTIONS (3)
  - Skin cancer [Unknown]
  - Intentional product misuse [Unknown]
  - Asthenia [Unknown]
